FAERS Safety Report 5591109-8 (Version None)
Quarter: 2008Q1

REPORT INFORMATION
  Report Type: 
  Country: None (occurrence: None)
  Receive Date: 20080110
  Receipt Date: 20071228
  Transmission Date: 20080703
  Serious: Yes (Hospitalization)
  Sender: FDA-Public Use
  Company Number: S07-GER-05543-01

PATIENT
  Age: 75 Year
  Sex: Female

DRUGS (6)
  1. CIPRAMIL [Suspect]
     Dosage: 20 MG ONCE PO
     Route: 048
  2. TRIMIPRAMIN                (TRIMIPRAMINE) [Concomitant]
  3. METOPROLOL SUCCINATE [Concomitant]
  4. ATACAND [Concomitant]
  5. RAMIPRIL [Concomitant]
  6. AMILOCOMP              (AMILORIDE /HYDROCHLOROTHIAZIDE) [Concomitant]

REACTIONS (13)
  - CARDIAC FAILURE [None]
  - CONVULSION [None]
  - DEHYDRATION [None]
  - DEPRESSED LEVEL OF CONSCIOUSNESS [None]
  - DIARRHOEA [None]
  - DISTURBANCE IN ATTENTION [None]
  - DIZZINESS [None]
  - FOAMING AT MOUTH [None]
  - GASTROENTERITIS [None]
  - GENERAL PHYSICAL HEALTH DETERIORATION [None]
  - HYPONATRAEMIA [None]
  - OEDEMA [None]
  - VOMITING [None]
